FAERS Safety Report 7661786-6 (Version None)
Quarter: 2011Q3

REPORT INFORMATION
  Report Type: 
  Country: None (occurrence: None)
  Receive Date: 20110805
  Receipt Date: 20101027
  Transmission Date: 20111222
  Serious: No
  Sender: FDA-Public Use
  Company Number: US-ABBOTT-10P-163-0681847-00

PATIENT
  Sex: Male
  Weight: 86.26 kg

DRUGS (6)
  1. SIMVASTATIN [Concomitant]
     Indication: BLOOD CHOLESTEROL INCREASED
     Route: 048
  2. ASPIRIN [Concomitant]
     Indication: FLUSHING
     Dosage: TAKES AT SAME TIME W/NIASPAN COATED
     Route: 048
  3. ASPIRIN [Concomitant]
     Indication: PROPHYLAXIS
  4. METOPROLOL TARTRATE [Concomitant]
     Indication: HYPERTENSION
     Route: 048
  5. NIASPAN [Suspect]
     Indication: BLOOD TRIGLYCERIDES INCREASED
     Route: 048
     Dates: start: 20100901
  6. ALENDRONATE SODIUM [Concomitant]
     Indication: OSTEOPOROSIS
     Route: 048

REACTIONS (3)
  - FLUSHING [None]
  - PRURITUS [None]
  - PARAESTHESIA [None]
